FAERS Safety Report 21418468 (Version 2)
Quarter: 2022Q4

REPORT INFORMATION
  Report Type: Report from Study
  Country: US (occurrence: US)
  Receive Date: 20221006
  Receipt Date: 20221010
  Transmission Date: 20230112
  Serious: Yes (Hospitalization)
  Sender: FDA-Public Use
  Company Number: US-NOVARTISPH-NVSC2022US222490

PATIENT
  Age: 93 Year
  Sex: Female
  Weight: 70.3 kg

DRUGS (17)
  1. DIOVAN [Suspect]
     Active Substance: VALSARTAN
     Indication: Cardiac failure acute
     Dosage: UNK
     Route: 048
     Dates: start: 20220913, end: 20220930
  2. DIOVAN [Suspect]
     Active Substance: VALSARTAN
     Dosage: UNK
     Route: 048
     Dates: start: 20221004
  3. TORSEMIDE [Concomitant]
     Active Substance: TORSEMIDE
     Indication: Cardiac failure
     Dosage: UNK
     Route: 065
     Dates: start: 20220916, end: 20220920
  4. TORSEMIDE [Concomitant]
     Active Substance: TORSEMIDE
     Dosage: UNK
     Route: 065
     Dates: start: 20220921, end: 20220922
  5. TORSEMIDE [Concomitant]
     Active Substance: TORSEMIDE
     Dosage: UNK
     Route: 065
     Dates: start: 20220923
  6. TORSEMIDE [Concomitant]
     Active Substance: TORSEMIDE
     Dosage: UNK
     Route: 065
     Dates: start: 20220927
  7. TORSEMIDE [Concomitant]
     Active Substance: TORSEMIDE
     Dosage: UNK
     Route: 065
     Dates: start: 20220923, end: 20220930
  8. TORSEMIDE [Concomitant]
     Active Substance: TORSEMIDE
     Dosage: UNK
     Route: 065
     Dates: start: 20220927, end: 20221001
  9. ELIQUIS [Concomitant]
     Active Substance: APIXABAN
     Indication: Atrial fibrillation
     Dosage: UNK
     Route: 065
     Dates: start: 2018
  10. MUCINEX [Concomitant]
     Active Substance: GUAIFENESIN
     Indication: Cough
     Dosage: UNK
     Route: 065
     Dates: start: 20220919
  11. ATORVASTATIN [Concomitant]
     Active Substance: ATORVASTATIN
     Indication: Hyperlipidaemia
     Dosage: UNK
     Route: 065
     Dates: start: 2012
  12. PLAVIX [Concomitant]
     Active Substance: CLOPIDOGREL BISULFATE
     Indication: Transient ischaemic attack
     Dosage: UNK
     Route: 065
     Dates: start: 2020
  13. COLACE [Concomitant]
     Active Substance: DOCUSATE SODIUM
     Indication: Constipation
     Dosage: UNK
     Route: 065
     Dates: start: 2021
  14. SENNA [Concomitant]
     Active Substance: SENNA LEAF\SENNOSIDES\SENNOSIDES A AND B
     Indication: Constipation
     Dosage: UNK
     Route: 065
     Dates: start: 2021
  15. XALATAN [Concomitant]
     Active Substance: LATANOPROST
     Indication: Glaucoma
     Dosage: UNK
     Route: 065
     Dates: start: 2015
  16. DIABETIC TUSSIN EXPECTORANT [Concomitant]
     Active Substance: GUAIFENESIN
     Indication: Cough
     Dosage: UNK
     Route: 065
     Dates: start: 202209
  17. COLCHICINE [Concomitant]
     Active Substance: COLCHICINE
     Indication: Gout
     Dosage: UNK
     Route: 065
     Dates: start: 2021

REACTIONS (2)
  - Dyspnoea [Recovered/Resolved]
  - Hypoxia [Recovered/Resolved]

NARRATIVE: CASE EVENT DATE: 20220930
